FAERS Safety Report 7349968-4 (Version None)
Quarter: 2011Q1

REPORT INFORMATION
  Report Type: 
  Country: None (occurrence: None)
  Receive Date: 20110314
  Receipt Date: 20110307
  Transmission Date: 20110831
  Serious: Yes (Death, Hospitalization)
  Sender: FDA-Public Use
  Company Number: US-ELI_LILLY_AND_COMPANY-US201103002341

PATIENT
  Age: 64 Year
  Sex: Female
  Weight: 79.501 kg

DRUGS (3)
  1. PEMETREXED [Suspect]
     Indication: NON-SMALL CELL LUNG CANCER
     Dosage: 500 MG/M2, EVERY 21 DAYS
     Route: 042
     Dates: start: 20101023, end: 20101214
  2. CARBOPLATIN [Suspect]
     Indication: NON-SMALL CELL LUNG CANCER
     Dosage: 6 AUC EVERY 21 DAYS
     Route: 042
     Dates: start: 20101023, end: 20101214
  3. OTHER PHARMA COMPANY INV DRUG [Suspect]
     Indication: NON-SMALL CELL LUNG CANCER
     Dosage: 400 MG, 2/D
     Route: 048
     Dates: start: 20101023, end: 20101223

REACTIONS (3)
  - DIARRHOEA [None]
  - PLATELET COUNT DECREASED [None]
  - SEPSIS [None]
